FAERS Safety Report 8464840-4 (Version None)
Quarter: 2012Q2

REPORT INFORMATION
  Report Type: 
  Country: None (occurrence: None)
  Receive Date: 20120626
  Receipt Date: 20120623
  Transmission Date: 20120825
  Serious: Yes (Hospitalization)
  Sender: FDA-Public Use
  Company Number: FR-ABBOTT-12P-056-0949308-00

PATIENT
  Age: 20 Year
  Sex: Male

DRUGS (5)
  1. RISPERIDONE [Suspect]
     Indication: SCHIZOPHRENIA
     Dosage: EVERY OTHER WEEK
     Route: 030
     Dates: start: 20111213
  2. NOROXIN [Suspect]
     Indication: PRODUCT USED FOR UNKNOWN INDICATION
     Dosage: DAILY
     Route: 048
     Dates: start: 20111230, end: 20120103
  3. DEPAKOTE / ORAL / GASTRO-RESISTANT TABLET [Suspect]
     Indication: SCHIZOPHRENIA
     Dosage: DAILY
     Route: 048
     Dates: start: 20111213, end: 20120101
  4. PYOSTACINE [Suspect]
     Indication: PYODERMA
     Route: 048
     Dates: start: 20111223, end: 20120101
  5. TRIHEXYPHENIDYL HYDROCHLORIDE [Suspect]
     Indication: PRODUCT USED FOR UNKNOWN INDICATION
     Dosage: EXTENDED RELEASE, DAILY
     Route: 048
     Dates: start: 20111228, end: 20120101

REACTIONS (2)
  - RHABDOMYOLYSIS [None]
  - TRANSAMINASES INCREASED [None]
